FAERS Safety Report 4536710-5 (Version None)
Quarter: 2004Q4

REPORT INFORMATION
  Report Type: 
  Country: None (occurrence: None)
  Receive Date: 20041222
  Receipt Date: 20041222
  Transmission Date: 20050328
  Serious: Yes (Hospitalization)
  Sender: FDA-Public Use
  Company Number: None

PATIENT
  Age: 69 Year
  Sex: Male
  Weight: 64.8644 kg

DRUGS (8)
  1. WARFARIN SODIUM [Suspect]
     Indication: ATRIAL FIBRILLATION
     Dosage: 5 MG PO DAILY ALT 7.5 MG
     Route: 048
  2. LANOXIN [Concomitant]
  3. SPIRONOLACTONE [Concomitant]
  4. BUMEX [Concomitant]
  5. COREG [Concomitant]
  6. COZAAR [Concomitant]
  7. INSULIN [Concomitant]
  8. COUMADIN [Concomitant]

REACTIONS (2)
  - CEREBRAL HAEMORRHAGE [None]
  - INTERNATIONAL NORMALISED RATIO DECREASED [None]
